FAERS Safety Report 5092429-6 (Version None)
Quarter: 2006Q3

REPORT INFORMATION
  Report Type: 
  Country: None (occurrence: None)
  Receive Date: 20060825
  Receipt Date: 20060810
  Transmission Date: 20061208
  Serious: Yes (Other)
  Sender: FDA-Public Use
  Company Number: 2006PV018820

PATIENT
  Age: 61 Year
  Sex: Male
  Weight: 110.2241 kg

DRUGS (7)
  1. BYETTA [Suspect]
     Indication: DIABETES MELLITUS NON-INSULIN-DEPENDENT
     Dosage: 5 MCG;BID;SC
     Route: 058
     Dates: start: 20060221
  2. ACTOS [Concomitant]
  3. METFORMIN HCL [Concomitant]
  4. AMARYL [Concomitant]
  5. ZETIA [Concomitant]
  6. OMACOR [Concomitant]
  7. ALTACE [Concomitant]

REACTIONS (3)
  - BLINDNESS TRANSIENT [None]
  - HEADACHE [None]
  - STRESS [None]
